FAERS Safety Report 6372339-4 (Version None)
Quarter: 2009Q3

REPORT INFORMATION
  Report Type: 
  Country: None (occurrence: None)
  Receive Date: 20090924
  Receipt Date: 20081001
  Transmission Date: 20100115
  Serious: No
  Sender: FDA-Public Use
  Company Number: US-ASTRAZENECA-2008UW21083

PATIENT
  Age: 52 Year
  Sex: Female

DRUGS (1)
  1. SEROQUEL [Suspect]
     Indication: MANIA
     Route: 048

REACTIONS (7)
  - AGGRESSION [None]
  - DYSPEPSIA [None]
  - ILL-DEFINED DISORDER [None]
  - IRRITABILITY [None]
  - MEMORY IMPAIRMENT [None]
  - SOCIAL AVOIDANT BEHAVIOUR [None]
  - SOMNOLENCE [None]
